FAERS Safety Report 10688528 (Version 1)
Quarter: 2015Q1

REPORT INFORMATION
  Report Type: Spontaneous
  Country: US (occurrence: US)
  Receive Date: 20150102
  Receipt Date: 20150102
  Transmission Date: 20150720
  Serious: Yes (Hospitalization)
  Sender: FDA-Public Use
  Company Number: US-PERRIGO-14US012544

PATIENT
  Age: 15 Year
  Sex: Male

DRUGS (2)
  1. NAPROXEN SODIUM 220 MG 368 [Suspect]
     Active Substance: NAPROXEN SODIUM
     Indication: INTENTIONAL OVERDOSE
     Dosage: 33 GRAMS, UNK
     Route: 048
  2. IBUPROFEN 200MG 628 [Suspect]
     Active Substance: IBUPROFEN
     Indication: INTENTIONAL OVERDOSE
     Dosage: 10 GRAMS, UNK
     Route: 048

REACTIONS (13)
  - Toxicity to various agents [None]
  - Intentional overdose [Recovered/Resolved]
  - Metabolic acidosis [Recovered/Resolved]
  - Delirium [None]
  - Mental status changes [Recovered/Resolved]
  - Somnolence [Recovered/Resolved]
  - Haemodynamic instability [None]
  - Hypotension [Recovered/Resolved]
  - Adrenal insufficiency [Recovered/Resolved]
  - Lethargy [Recovered/Resolved]
  - Vomiting [Recovered/Resolved]
  - Agitation [None]
  - Suicide attempt [None]
